FAERS Safety Report 9674952 (Version 1)
Quarter: 2013Q4

REPORT INFORMATION
  Report Type: Spontaneous
  Country: US (occurrence: None)
  Receive Date: 20131106
  Receipt Date: 20131106
  Transmission Date: 20140711
  Serious: No
  Sender: FDA-Public Use
  Company Number: None

PATIENT
  Age: 43 Year
  Sex: Male

DRUGS (1)
  1. OPANA ER [Suspect]
     Indication: PRODUCT USED FOR UNKNOWN INDICATION
     Dosage: WAS PRESCRIBED

REACTIONS (4)
  - Haemolytic anaemia [None]
  - Thrombotic thrombocytopenic purpura [None]
  - Renal failure [None]
  - Haemodialysis [None]
